FAERS Safety Report 21743701 (Version 1)
Quarter: 2022Q4

REPORT INFORMATION
  Report Type: Spontaneous
  Country: JP (occurrence: JP)
  Receive Date: 20221217
  Receipt Date: 20221217
  Transmission Date: 20230113
  Serious: Yes (Hospitalization, Other)
  Sender: FDA-Public Use
  Company Number: JP-NATCOUSA-2022-NATCOUSA-000098

PATIENT
  Age: 77 Year
  Sex: Female

DRUGS (2)
  1. ERLOTINIB [Suspect]
     Active Substance: ERLOTINIB
     Indication: Non-small cell lung cancer recurrent
  2. RAMUCIRUMAB [Suspect]
     Active Substance: RAMUCIRUMAB
     Indication: Non-small cell lung cancer recurrent

REACTIONS (4)
  - Pneumonia cryptococcal [Unknown]
  - Metastases to liver [Unknown]
  - Therapy partial responder [Unknown]
  - Disease progression [Unknown]
